FAERS Safety Report 7690161-3 (Version None)
Quarter: 2011Q3

REPORT INFORMATION
  Report Type: 
  Country: None (occurrence: None)
  Receive Date: 20110811
  Receipt Date: 20110727
  Transmission Date: 20111222
  Serious: Yes (Other)
  Sender: FDA-Public Use
  Company Number: 2011SP035403

PATIENT
  Age: 33 Year
  Sex: Female

DRUGS (13)
  1. JZOLOFT (SERTRALINE HYDROCHLORIDE ) [Concomitant]
  2. HALCION [Concomitant]
  3. SILECE [Concomitant]
  4. DIAZEPAM [Concomitant]
  5. DORAL [Concomitant]
  6. RAVONA (PENTOBARBITURATE) [Concomitant]
  7. ROZEREM [Concomitant]
  8. LORAZEPAM [Concomitant]
  9. DEPAS [Concomitant]
  10. PENTOBARBITAL SODIUM [Suspect]
  11. ZOLPIDEM [Concomitant]
  12. DESOGESTREL AND ETHINYL ESTRADIOL [Suspect]
     Indication: CONTRACEPTION
     Dosage: 1 DF; QD; PO
     Route: 048
     Dates: start: 20090101, end: 20110101
  13. SEROQUEL [Concomitant]

REACTIONS (5)
  - BREAST SWELLING [None]
  - METRORRHAGIA [None]
  - PREGNANCY ON ORAL CONTRACEPTIVE [None]
  - ECTOPIC PREGNANCY [None]
  - MATERNAL EXPOSURE DURING PREGNANCY [None]
